FAERS Safety Report 4665425-8 (Version None)
Quarter: 2005Q2

REPORT INFORMATION
  Report Type: 
  Country: None (occurrence: None)
  Receive Date: 20050518
  Receipt Date: 20050518
  Transmission Date: 20051028
  Serious: Yes (Hospitalization)
  Sender: FDA-Public Use
  Company Number: None

PATIENT
  Sex: Male

DRUGS (11)
  1. GLYBURIDE [Suspect]
     Indication: DIABETES MELLITUS
     Dosage: 10MG/5MG  AM/PM  ORAL
     Route: 048
  2. POTASSIUM CHLORIDE [Concomitant]
  3. SIMVASTATIN [Concomitant]
  4. LISINOPRIL [Concomitant]
  5. IBUPROFEN [Concomitant]
  6. ATENOLOL [Concomitant]
  7. ASPIRIN [Concomitant]
  8. AMLODIPINE [Concomitant]
  9. ALLOPURINOL [Concomitant]
  10. GABAPENTIN [Concomitant]
  11. FUROSEMIDE [Concomitant]

REACTIONS (2)
  - FALL [None]
  - HYPOGLYCAEMIA [None]
